FAERS Safety Report 11537899 (Version 1)
Quarter: 2015Q3

REPORT INFORMATION
  Report Type: Spontaneous
  Country: ES (occurrence: ES)
  Receive Date: 20150922
  Receipt Date: 20150922
  Transmission Date: 20151125
  Serious: Yes (Hospitalization, Other)
  Sender: FDA-Public Use
  Company Number: ES-BAYER-2015-424342

PATIENT
  Age: 67 Year
  Sex: Male

DRUGS (2)
  1. CIPROFLOXACIN. [Suspect]
     Active Substance: CIPROFLOXACIN
     Indication: DIVERTICULITIS
     Dosage: 500 MG, BID
     Dates: start: 2010
  2. METRONIDAZOLE. [Suspect]
     Active Substance: METRONIDAZOLE
     Indication: DIVERTICULITIS
     Dosage: 500 MG, TID
     Dates: start: 2010

REACTIONS (4)
  - Haemolysis [Recovered/Resolved]
  - Jaundice [Recovered/Resolved]
  - Abdominal pain lower [None]
  - Haemolysis [Recovered/Resolved]

NARRATIVE: CASE EVENT DATE: 2010
